FAERS Safety Report 9714779 (Version 2)
Quarter: 2013Q4

REPORT INFORMATION
  Report Type: Spontaneous
  Country: TW (occurrence: TW)
  Receive Date: 20131126
  Receipt Date: 20131126
  Transmission Date: 20140711
  Serious: Yes (Hospitalization)
  Sender: FDA-Public Use
  Company Number: TW-ABBVIE-13P-153-1054225-00

PATIENT
  Age: 65 Year
  Sex: Male
  Weight: 60 kg

DRUGS (6)
  1. HUMIRA [Suspect]
     Indication: RHEUMATOID ARTHRITIS
     Route: 058
     Dates: start: 20120712, end: 20130207
  2. HUMIRA [Suspect]
     Dates: start: 201303, end: 20131111
  3. AMLODIPINE 5 MG + VALSARTAN 160 MG [Concomitant]
     Indication: HYPERTENSION
     Route: 048
     Dates: start: 20130221
  4. GLIMEPIRIDE [Concomitant]
     Indication: DIABETES MELLITUS
     Route: 048
     Dates: start: 20120614
  5. FOSAMAX PLUS [Concomitant]
     Indication: OSTEOPOROSIS
     Route: 048
     Dates: start: 20121227
  6. BROWN MIXTURE [Concomitant]
     Indication: COUGH
     Dosage: LIQUID
     Route: 048
     Dates: start: 20130208

REACTIONS (5)
  - Fracture [Recovering/Resolving]
  - Fall [Unknown]
  - Fall [Unknown]
  - Fall [Unknown]
  - Fall [Unknown]
